FAERS Safety Report 25255069 (Version 2)
Quarter: 2025Q2

REPORT INFORMATION
  Report Type: Spontaneous
  Country: US (occurrence: US)
  Receive Date: 20250430
  Receipt Date: 20250609
  Transmission Date: 20250716
  Serious: No
  Sender: ALEXION PHARMACEUTICALS
  Company Number: US-AstraZeneca-CH-00856941AP

PATIENT
  Age: 81 Year

DRUGS (1)
  1. AIRSUPRA [Suspect]
     Active Substance: ALBUTEROL SULFATE\BUDESONIDE
     Dosage: 90 MICROGRAM, QID
     Route: 065

REACTIONS (4)
  - Device delivery system issue [Unknown]
  - Intentional device use issue [Unknown]
  - Device malfunction [Unknown]
  - Incorrect dose administered [Unknown]
